FAERS Safety Report 5789410-8 (Version None)
Quarter: 2008Q2

REPORT INFORMATION
  Report Type: 
  Country: None (occurrence: None)
  Receive Date: 20080626
  Receipt Date: 20080107
  Transmission Date: 20081010
  Serious: No
  Sender: FDA-Public Use
  Company Number: US-ASTRAZENECA-2008UW00434

PATIENT
  Sex: Female

DRUGS (2)
  1. PULMICORT-100 [Suspect]
     Indication: BRONCHITIS CHRONIC
     Route: 055
  2. IPRATROPIUM BROMIDE [Concomitant]

REACTIONS (1)
  - DYSPNOEA [None]
